FAERS Safety Report 19482106 (Version 2)
Quarter: 2021Q3

REPORT INFORMATION
  Report Type: Spontaneous
  Country: US (occurrence: US)
  Receive Date: 20210701
  Receipt Date: 20210728
  Transmission Date: 20211014
  Serious: No
  Sender: FDA-Public Use
  Company Number: US-BAUSCH-BL-2021-020145

PATIENT
  Age: 64 Year
  Sex: Female

DRUGS (2)
  1. LOTEPREDNOL ETABONATE [Suspect]
     Active Substance: LOTEPREDNOL ETABONATE
     Indication: OCULAR ROSACEA
     Dosage: AS NEEDED FOR MANY YEARS
     Route: 047
  2. LOTEMAX [Suspect]
     Active Substance: LOTEPREDNOL ETABONATE
     Indication: OCULAR ROSACEA
     Dosage: AS NEEDED
     Route: 065

REACTIONS (4)
  - Ocular rosacea [Not Recovered/Not Resolved]
  - Insurance issue [Unknown]
  - Product quality issue [Unknown]
  - Condition aggravated [Not Recovered/Not Resolved]
